FAERS Safety Report 16171326 (Version 1)
Quarter: 2019Q2

REPORT INFORMATION
  Report Type: Spontaneous
  Country: US (occurrence: US)
  Receive Date: 20190408
  Receipt Date: 20190408
  Transmission Date: 20190711
  Serious: No
  Sender: FDA-Public Use
  Company Number: US-TARO-2018TAR00298

PATIENT
  Age: 45 Year
  Sex: Female
  Weight: 54.42 kg

DRUGS (2)
  1. CALCIPOTRIENE (SANDOZ) [Suspect]
     Active Substance: CALCIPOTRIENE
     Indication: PRECANCEROUS CELLS PRESENT
     Dosage: UNK, 2X/DAY
     Route: 061
     Dates: start: 20180226, end: 20180303
  2. FLUOROURACIL CREAM [Suspect]
     Active Substance: FLUOROURACIL
     Indication: PRECANCEROUS CELLS PRESENT
     Dosage: UNK, 2X/DAY
     Route: 061
     Dates: start: 20180226, end: 20180303

REACTIONS (13)
  - Hyperhidrosis [Unknown]
  - Haemoglobin increased [Unknown]
  - Toxicity to various agents [Unknown]
  - Rash [Unknown]
  - Lymphocyte count decreased [Unknown]
  - Blood bilirubin increased [Unknown]
  - Gait inability [Recovered/Resolved]
  - Pain [Recovering/Resolving]
  - Neurological symptom [Unknown]
  - Occult blood positive [Unknown]
  - Platelet count decreased [Unknown]
  - Haematocrit increased [Unknown]
  - Red blood cell count abnormal [Unknown]

NARRATIVE: CASE EVENT DATE: 2018
